FAERS Safety Report 8886743 (Version 2)
Quarter: 2013Q1

REPORT INFORMATION
  Report Type: Spontaneous
  Country: US (occurrence: US)
  Receive Date: 20121105
  Receipt Date: 20130125
  Transmission Date: 20140127
  Serious: Yes (Other)
  Sender: FDA-Public Use
  Company Number: US-TEVA-367623USA

PATIENT
  Age: 81 None
  Sex: Male
  Weight: 83.99 kg

DRUGS (4)
  1. AZILECT [Suspect]
     Indication: PARKINSON^S DISEASE
     Dosage: QD
     Route: 048
     Dates: start: 20121009, end: 20121016
  2. LEVODOPA/CARBIDOPA [Concomitant]
     Indication: PARKINSON^S DISEASE
     Dosage: 100 MG/25 MG X3, 900 MG/150 MG TID
     Route: 048
  3. NAPROXEN [Concomitant]
     Indication: ARTHRALGIA
     Dosage: PRN
     Route: 048
  4. FUROSEMIDE [Concomitant]
     Indication: SWELLING
     Dosage: PRN
     Route: 048

REACTIONS (6)
  - Hypertension [Recovered/Resolved with Sequelae]
  - Drug withdrawal syndrome [Not Recovered/Not Resolved]
  - Blood pressure fluctuation [Unknown]
  - Dizziness [Recovered/Resolved]
  - Hyperhidrosis [Not Recovered/Not Resolved]
  - Diarrhoea [Not Recovered/Not Resolved]
